FAERS Safety Report 9893755 (Version 7)
Quarter: 2021Q1

REPORT INFORMATION
  Report Type: Spontaneous
  Country: US (occurrence: US)
  Receive Date: 20140213
  Receipt Date: 20210210
  Transmission Date: 20210420
  Serious: Yes (Hospitalization, Other)
  Sender: FDA-Public Use
  Company Number: US-009507513-1402USA004141

PATIENT
  Sex: Female
  Weight: 54.42 kg

DRUGS (4)
  1. FOSAMAX [Suspect]
     Active Substance: ALENDRONATE SODIUM
     Indication: OSTEOPENIA
     Dosage: 70 MILLIGRAM
     Route: 048
     Dates: start: 2001
  2. ALENDRONATE SODIUM. [Suspect]
     Active Substance: ALENDRONATE SODIUM
     Indication: OSTEOPENIA
     Dosage: 70 MILLIGRAM
     Route: 048
     Dates: start: 2001, end: 2011
  3. CALCIUM (UNSPECIFIED) [Concomitant]
     Active Substance: CALCIUM
     Indication: OSTEOPENIA
     Dosage: 1200?1500 IU, DAILY
     Route: 048
     Dates: start: 2000
  4. CHOLECALCIFEROL [Concomitant]
     Active Substance: CHOLECALCIFEROL
     Indication: OSTEOPENIA
     Dosage: 800? 1600 IU, DAILY
     Route: 048
     Dates: start: 2000

REACTIONS (9)
  - Femur fracture [Recovering/Resolving]
  - Anxiety [Unknown]
  - Scoliosis [Unknown]
  - Osteopenia [Unknown]
  - Open reduction of fracture [Unknown]
  - Degenerative bone disease [Unknown]
  - Femur fracture [Unknown]
  - Intramedullary rod insertion [Unknown]
  - Osteoporosis postmenopausal [Unknown]

NARRATIVE: CASE EVENT DATE: 200607
